FAERS Safety Report 18224419 (Version 1)
Quarter: 2020Q3

REPORT INFORMATION
  Report Type: Spontaneous
  Country: GB (occurrence: GB)
  Receive Date: 20200902
  Receipt Date: 20200902
  Transmission Date: 20201103
  Serious: Yes (Disabling, Other)
  Sender: FDA-Public Use
  Company Number: GB-ASCEND THERAPEUTICS US, LLC-2089340

PATIENT
  Age: 57 Year
  Sex: Female
  Weight: 90 kg

DRUGS (4)
  1. ESTROGEL [Suspect]
     Active Substance: ESTRADIOL
     Indication: HORMONE REPLACEMENT THERAPY
     Route: 062
     Dates: start: 20200730
  2. ESTROGEL [Suspect]
     Active Substance: ESTRADIOL
  3. OESTRODOSE (ESTRADIOL)?INDICATION FOR USE: HORMONE REPLACEMENT THERAPY [Suspect]
     Active Substance: ESTRADIOL
     Route: 062
     Dates: start: 20200730
  4. OESTROGEL (ESTRADIOL), UNKNOWN [Concomitant]
     Active Substance: ESTRADIOL
     Route: 065

REACTIONS (4)
  - Menopausal symptoms [Recovering/Resolving]
  - Product odour abnormal [Unknown]
  - Product substitution issue [Unknown]
  - Drug ineffective [Unknown]
